FAERS Safety Report 18732543 (Version 1)
Quarter: 2021Q1

REPORT INFORMATION
  Report Type: Spontaneous
  Country: US (occurrence: US)
  Receive Date: 20210112
  Receipt Date: 20210112
  Transmission Date: 20210419
  Serious: Yes (Other)
  Sender: FDA-Public Use
  Company Number: US-PERRIGO-20US018840

PATIENT
  Age: 62 Year
  Sex: Female

DRUGS (5)
  1. PREVACID 24 HR [Suspect]
     Active Substance: LANSOPRAZOLE
     Indication: GASTROOESOPHAGEAL REFLUX DISEASE
     Dosage: 20 MG, QD
     Route: 048
     Dates: start: 1996, end: 2016
  2. OMEPRAZOLE                         /00661202/ [Suspect]
     Active Substance: OMEPRAZOLE SODIUM
     Indication: GASTROOESOPHAGEAL REFLUX DISEASE
     Dosage: 20 MG, QD
     Route: 048
     Dates: start: 1982, end: 20180727
  3. OMEPRAZOLE                         /00661202/ [Suspect]
     Active Substance: OMEPRAZOLE SODIUM
     Indication: PRODUCT USED FOR UNKNOWN INDICATION
     Dosage: 20 MG, QD
     Route: 048
  4. PRILOSEC OTC [Suspect]
     Active Substance: OMEPRAZOLE MAGNESIUM
     Indication: GASTROOESOPHAGEAL REFLUX DISEASE
     Dosage: 20 MG, QD
     Route: 048
     Dates: start: 1991, end: 201606
  5. NEXIUM 24HR [Suspect]
     Active Substance: ESOMEPRAZOLE MAGNESIUM
     Indication: GASTROOESOPHAGEAL REFLUX DISEASE
     Dosage: 20 MG, QD
     Route: 048
     Dates: start: 2001, end: 2006

REACTIONS (21)
  - Renal cyst [Unknown]
  - Renal disorder [Recovered/Resolved]
  - Haemodialysis [Unknown]
  - Renal failure [Recovered/Resolved]
  - Urinary tract obstruction [Unknown]
  - Kidney small [Unknown]
  - Micturition urgency [Unknown]
  - End stage renal disease [Recovered/Resolved]
  - Chronic kidney disease [Recovered/Resolved]
  - Dialysis [Unknown]
  - Proteinuria [Unknown]
  - Nocturia [Unknown]
  - Glomerulosclerosis [Unknown]
  - Renal artery stenosis [Recovered/Resolved]
  - Nephropathy [Recovered/Resolved]
  - Renal transplant [Recovered/Resolved]
  - Urinary retention [Unknown]
  - Ureteric stenosis [Unknown]
  - Peritoneal dialysis [Recovered/Resolved]
  - Pollakiuria [Unknown]
  - Dysuria [Unknown]

NARRATIVE: CASE EVENT DATE: 20140501
